FAERS Safety Report 5092307-2 (Version None)
Quarter: 2006Q3

REPORT INFORMATION
  Report Type: 
  Country: None (occurrence: None)
  Receive Date: 20060825
  Receipt Date: 20060807
  Transmission Date: 20061208
  Serious: Yes (Hospitalization, Other)
  Sender: FDA-Public Use
  Company Number: US200603002055

PATIENT
  Age: 44 Year
  Sex: Male
  Weight: 99.8 kg

DRUGS (2)
  1. ZYPREXA [Suspect]
     Indication: DEPRESSION
     Dates: start: 19980101, end: 20040101
  2. DOXEPIN [Concomitant]

REACTIONS (7)
  - DIABETES MELLITUS NON-INSULIN-DEPENDENT [None]
  - DIABETIC COMA [None]
  - HEPATITIS C [None]
  - HYPERINSULINISM [None]
  - HYPERTENSION [None]
  - OBESITY [None]
  - VISION BLURRED [None]
